FAERS Safety Report 10076952 (Version 4)
Quarter: 2014Q3

REPORT INFORMATION
  Report Type: Report from Study
  Country: ES (occurrence: ES)
  Receive Date: 20140414
  Receipt Date: 20140827
  Transmission Date: 20150326
  Serious: Yes (Hospitalization)
  Sender: FDA-Public Use
  Company Number: ES-VIIV HEALTHCARE LIMITED-B0985298A

PATIENT
  Age: 55 Year
  Sex: Male
  Weight: 58.5 kg

DRUGS (8)
  1. RITONAVIR [Concomitant]
     Active Substance: RITONAVIR
     Dosage: 150MG PER DAY
     Dates: start: 20090427
  2. MARAVIROC [Suspect]
     Active Substance: MARAVIROC
     Indication: HIV INFECTION
     Dosage: 150MG TWICE PER DAY
     Route: 048
     Dates: start: 20090427
  3. ROSUVASTATIN [Concomitant]
     Active Substance: ROSUVASTATIN
     Dosage: 5MG PER DAY
     Route: 048
     Dates: start: 20040519
  4. ETRAVIRINE [Concomitant]
     Active Substance: ETRAVIRINE
     Dosage: 400MG PER DAY
     Dates: start: 20090427
  5. METFORMIN [Concomitant]
     Active Substance: METFORMIN HYDROCHLORIDE
     Indication: DIABETES MELLITUS
     Dosage: 1700MG PER DAY
     Route: 048
     Dates: start: 20040510
  6. ATAZANAVIR [Concomitant]
     Active Substance: ATAZANAVIR
     Dosage: 300MG PER DAY
     Dates: start: 20090427
  7. ZIPRASIDONE [Concomitant]
     Active Substance: ZIPRASIDONE
     Indication: PSYCHOTIC DISORDER
     Dosage: 80MG PER DAY
     Route: 048
     Dates: start: 200602
  8. RISPERIDONE. [Concomitant]
     Active Substance: RISPERIDONE
     Indication: PSYCHOTIC DISORDER
     Route: 030
     Dates: start: 20071123

REACTIONS (1)
  - Hepatic cancer [Recovered/Resolved]

NARRATIVE: CASE EVENT DATE: 20131105
